FAERS Safety Report 8144445-5 (Version None)
Quarter: 2012Q1

REPORT INFORMATION
  Report Type: 
  Country: None (occurrence: None)
  Receive Date: 20120103
  Receipt Date: 20110926
  Transmission Date: 20120608
  Serious: No
  Sender: FDA-Public Use
  Company Number: AE-2011-001641

PATIENT
  Age: 52 Year
  Sex: Female
  Weight: 97.5234 kg

DRUGS (7)
  1. PEGASYS (PEGINTERFERON [Concomitant]
  2. RIBAVIRIN [Concomitant]
  3. VICODIN [Concomitant]
  4. BENADRYL [Concomitant]
  5. INCIVEK [Suspect]
     Dosage: 2250MG, 750 MG 1 IN  8 HR, ORAL
     Route: 048
     Dates: start: 20110826
  6. FLEXERIL [Concomitant]
  7. ACETAMINOPHEN [Concomitant]

REACTIONS (1)
  - RASH [None]
